FAERS Safety Report 19828410 (Version 2)
Quarter: 2021Q3

REPORT INFORMATION
  Report Type: Spontaneous
  Country: US (occurrence: US)
  Receive Date: 20210914
  Receipt Date: 20210921
  Transmission Date: 20211014
  Serious: No
  Sender: FDA-Public Use
  Company Number: US-PFIZER INC-2021629547

PATIENT
  Age: 59 Year
  Sex: Male

DRUGS (1)
  1. LYRICA [Suspect]
     Active Substance: PREGABALIN
     Dosage: 150 MG, 3X/DAY (300 MG AM DAILY, 150 MG PM DAILY)

REACTIONS (3)
  - Skin ulcer [Unknown]
  - Furuncle [Unknown]
  - Diabetic foot [Unknown]
